FAERS Safety Report 17818087 (Version 1)
Quarter: 2020Q2

REPORT INFORMATION
  Report Type: Spontaneous
  Country: NL (occurrence: NL)
  Receive Date: 20200522
  Receipt Date: 20200522
  Transmission Date: 20200714
  Serious: Yes (Other)
  Sender: FDA-Public Use
  Company Number: NL-MYLANLABS-2020M1050257

PATIENT
  Age: 70 Year
  Sex: Male
  Weight: 139 kg

DRUGS (1)
  1. AMLODIPINE BESILATE/VALSARTAN [Suspect]
     Active Substance: AMLODIPINE BESYLATE\VALSARTAN
     Indication: BLOOD PRESSURE MEASUREMENT
     Dosage: 5/160 MILLIGRAM, BID (2X PER DAG  1STUK)
     Dates: start: 201403, end: 20140320

REACTIONS (6)
  - Dizziness [Recovered/Resolved]
  - Erectile dysfunction [Recovered/Resolved]
  - Breast enlargement [Recovered/Resolved]
  - Weight increased [Recovered/Resolved]
  - Oedema peripheral [Recovered/Resolved]
  - Asthenia [Recovered/Resolved]

NARRATIVE: CASE EVENT DATE: 20200320
